FAERS Safety Report 4884439-6 (Version None)
Quarter: 2006Q1

REPORT INFORMATION
  Report Type: 
  Country: None (occurrence: None)
  Receive Date: 20060119
  Receipt Date: 20060109
  Transmission Date: 20060701
  Serious: Yes (Hospitalization)
  Sender: FDA-Public Use
  Company Number: US-SOLVAY-00206000146

PATIENT
  Age: 22928 Day
  Sex: Male
  Weight: 86 kg

DRUGS (6)
  1. PERCOCET [Concomitant]
     Indication: SHOULDER PAIN
     Dosage: DAILY DOSE:  UNKNOWN
     Route: 048
  2. ANDROGEL [Suspect]
     Indication: BLOOD TESTOSTERONE DECREASED
     Dosage: DAILY DOSE:  UNKNOWN
     Route: 062
     Dates: start: 20030101
  3. CARDIZEM [Suspect]
     Indication: TREMOR
     Dosage: DAILY DOSE:  UNKNOWN
     Route: 048
     Dates: start: 20050613, end: 20050619
  4. ZOLOFT [Concomitant]
     Indication: BIPOLAR I DISORDER
     Dosage: DAILY DOSE:  UNKNOWN
     Route: 048
  5. DEPAKOTE [Concomitant]
     Indication: BIPOLAR I DISORDER
     Dosage: DAILY DOSE:  UNKNOWN
     Route: 048
  6. WELLBUTRIN [Concomitant]
     Indication: BIPOLAR I DISORDER
     Dosage: DAILY DOSE:  UNKNOWN
     Route: 048

REACTIONS (3)
  - HEADACHE [None]
  - HEART RATE DECREASED [None]
  - NASOPHARYNGITIS [None]
